FAERS Safety Report 20467291 (Version 1)
Quarter: 2022Q1

REPORT INFORMATION
  Report Type: Spontaneous
  Country: GB (occurrence: GB)
  Receive Date: 20220214
  Receipt Date: 20220214
  Transmission Date: 20220423
  Serious: Yes (Other)
  Sender: FDA-Public Use
  Company Number: GB-NOVOPROD-875762

PATIENT
  Sex: Male

DRUGS (1)
  1. NORDITROPIN [Suspect]
     Active Substance: SOMATROPIN
     Indication: Hypopituitarism
     Dosage: 0.3 MG, QD (ROUTE: AS DIRECTED)
     Route: 058

REACTIONS (9)
  - Brain neoplasm [Unknown]
  - Circulatory collapse [Unknown]
  - Injection site bruising [Recovered/Resolved]
  - Injection site haemorrhage [Recovered/Resolved]
  - Injection site discomfort [Unknown]
  - Dizziness [Unknown]
  - Injection site pain [Recovered/Resolved]
  - Product quality issue [Unknown]
  - Product dose omission issue [Unknown]
